FAERS Safety Report 6101070-5 (Version None)
Quarter: 2009Q1

REPORT INFORMATION
  Report Type: 
  Country: None (occurrence: None)
  Receive Date: 20090227
  Receipt Date: 20090219
  Transmission Date: 20090719
  Serious: Yes (Other)
  Sender: FDA-Public Use
  Company Number: 041580

PATIENT
  Age: 16 Year
  Sex: Male
  Weight: 59 kg

DRUGS (3)
  1. CLARAVIS [Suspect]
     Indication: ACNE
     Dosage: 20 MG, BID, ORAL;  20 MG IN THE AM, 40 MG IN THE PM, ORAL
     Route: 048
     Dates: start: 20081229, end: 20090127
  2. CLARAVIS [Suspect]
     Indication: ACNE
     Dosage: 20 MG, BID, ORAL;  20 MG IN THE AM, 40 MG IN THE PM, ORAL
     Route: 048
     Dates: start: 20090128
  3. PREVACID [Concomitant]

REACTIONS (9)
  - COUGH [None]
  - DEHYDRATION [None]
  - DIZZINESS [None]
  - DYSPNOEA [None]
  - FATIGUE [None]
  - INFLUENZA [None]
  - MALAISE [None]
  - OROPHARYNGEAL PAIN [None]
  - PYREXIA [None]
